FAERS Safety Report 7879043-1 (Version None)
Quarter: 2011Q4

REPORT INFORMATION
  Report Type: 
  Country: None (occurrence: None)
  Receive Date: 20111101
  Receipt Date: 20111024
  Transmission Date: 20120403
  Serious: Yes (Hospitalization)
  Sender: FDA-Public Use
  Company Number: PHFR2011IE00927

PATIENT
  Sex: Female

DRUGS (3)
  1. CITALOPRAM HYDROBROMIDE [Concomitant]
     Dosage: 30 MG, UNK
     Route: 065
  2. CLOZARIL [Suspect]
     Indication: SCHIZOPHRENIA
     Route: 048
     Dates: start: 19980930, end: 20110125
  3. CLOZARIL [Suspect]
     Dosage: 100 MG/ MORNING AND 200 MG/ NIGHT
     Route: 048
     Dates: start: 20110127

REACTIONS (3)
  - COLITIS ISCHAEMIC [None]
  - BLOOD ALBUMIN DECREASED [None]
  - ABDOMINAL DISTENSION [None]
